FAERS Safety Report 5707253-8 (Version None)
Quarter: 2008Q2

REPORT INFORMATION
  Report Type: 
  Country: None (occurrence: None)
  Receive Date: 20080416
  Receipt Date: 20080403
  Transmission Date: 20081010
  Serious: Yes (Disabling)
  Sender: FDA-Public Use
  Company Number: PHHY2008JP04877

PATIENT
  Age: 47 Year
  Sex: Male

DRUGS (2)
  1. VOLTAREN [Suspect]
     Dosage: 50MG/DAY
     Route: 054
     Dates: start: 20040701, end: 20040701
  2. TEGRETOL [Suspect]
     Dosage: 100MG/DAY
     Route: 048
     Dates: start: 20040701, end: 20040701

REACTIONS (2)
  - OPTIC NERVE DISORDER [None]
  - VISUAL DISTURBANCE [None]
